FAERS Safety Report 15958337 (Version 1)
Quarter: 2019Q1

REPORT INFORMATION
  Report Type: Spontaneous
  Country: US (occurrence: US)
  Receive Date: 20190213
  Receipt Date: 20190213
  Transmission Date: 20190417
  Serious: Yes (Other)
  Sender: FDA-Public Use
  Company Number: US-CELGENEUS-USA-20190202685

PATIENT
  Sex: Male

DRUGS (2)
  1. VENETOCLAX. [Suspect]
     Active Substance: VENETOCLAX
     Indication: ACUTE MYELOID LEUKAEMIA
     Route: 048
     Dates: start: 201901
  2. AZACITIDINE. [Suspect]
     Active Substance: AZACITIDINE
     Indication: PRODUCT USED FOR UNKNOWN INDICATION
     Route: 041

REACTIONS (2)
  - Diarrhoea [Unknown]
  - Neutropenia [Unknown]

NARRATIVE: CASE EVENT DATE: 201901
